FAERS Safety Report 7875396-9 (Version None)
Quarter: 2011Q4

REPORT INFORMATION
  Report Type: 
  Country: None (occurrence: None)
  Receive Date: 20111031
  Receipt Date: 20111021
  Transmission Date: 20120403
  Serious: Yes (Hospitalization)
  Sender: FDA-Public Use
  Company Number: IT-GLAXOSMITHKLINE-B0759333A

PATIENT
  Sex: Female

DRUGS (6)
  1. LANOXIN [Suspect]
     Indication: ATRIAL FIBRILLATION
     Dosage: .125MG PER DAY
     Route: 065
     Dates: start: 20110420, end: 20111011
  2. CORDARONE [Concomitant]
  3. SELEDIE [Concomitant]
  4. ROSUVASTATIN CALCIUM [Concomitant]
  5. MOTILIUM [Concomitant]
  6. ESCITALOPRAM [Concomitant]

REACTIONS (2)
  - TOXICITY TO VARIOUS AGENTS [None]
  - RENAL FAILURE ACUTE [None]
